FAERS Safety Report 23854184 (Version 1)
Quarter: 2024Q2

REPORT INFORMATION
  Report Type: Spontaneous
  Country: RU (occurrence: RU)
  Receive Date: 20240514
  Receipt Date: 20240514
  Transmission Date: 20240716
  Serious: Yes (Other)
  Sender: FDA-Public Use
  Company Number: RU-FreseniusKabi-FK202407489

PATIENT
  Age: 58 Year
  Sex: Female

DRUGS (5)
  1. ETOPOSIDE [Suspect]
     Active Substance: ETOPOSIDE
     Indication: Adrenocortical carcinoma
     Dosage: ROUTE OF ADMIN: INTRAVENOUS?ON DAYS 2-4?THE CYCLE EVERY 28 DAYS
     Dates: start: 202209
  2. CISPLATIN [Suspect]
     Active Substance: CISPLATIN
     Indication: Adrenocortical carcinoma
     Dosage: ROUTE: INTRAVENOUS?ON DAYS 3 AND 4?THE CYCLE EVERY 28 DAYS
     Dates: start: 202209
  3. DOXORUBICIN [Suspect]
     Active Substance: DOXORUBICIN
     Indication: Adrenocortical carcinoma
     Dosage: ROUTE: INTRAVENOUS?ON DAY 1
     Dates: start: 202209
  4. MITOTANE [Concomitant]
     Active Substance: MITOTANE
     Indication: Adrenocortical carcinoma
     Dosage: 4-8 MG/D ORALLY UP TO THE 24TH MONTH WAS PRESCRIBED
  5. OCTREOTIDE [Concomitant]
     Active Substance: OCTREOTIDE\OCTREOTIDE ACETATE
     Indication: Adrenocortical carcinoma
     Dosage: DEPO/LONG?INTRAMUSCULARLY ONCE DAILY FOR 28 DAYS.

REACTIONS (5)
  - Syncope [Unknown]
  - Thrombocytopenia [Unknown]
  - Hypotension [Unknown]
  - Nausea [Unknown]
  - Vomiting [Unknown]
